FAERS Safety Report 7385854-1 (Version None)
Quarter: 2011Q1

REPORT INFORMATION
  Report Type: 
  Country: None (occurrence: None)
  Receive Date: 20110331
  Receipt Date: 20110324
  Transmission Date: 20110831
  Serious: No
  Sender: FDA-Public Use
  Company Number: US-PFIZER INC-2011067060

PATIENT
  Sex: Female

DRUGS (2)
  1. DIFLUCAN [Suspect]
     Indication: FUNGAL INFECTION
     Dosage: 200 MG, UNK
  2. DIFLUCAN [Suspect]
     Dosage: 400 MG, UNK

REACTIONS (1)
  - FOOD CRAVING [None]
